FAERS Safety Report 14670792 (Version 1)
Quarter: 2018Q1

REPORT INFORMATION
  Report Type: Spontaneous
  Country: GB (occurrence: GB)
  Receive Date: 20180322
  Receipt Date: 20180322
  Transmission Date: 20180509
  Serious: Yes (Disabling)
  Sender: FDA-Public Use
  Company Number: GB-GE HEALTHCARE LIFE SCIENCES-OSCN-NO-0804L-0191

PATIENT

DRUGS (11)
  1. RAPAMYCIN [Concomitant]
     Active Substance: SIROLIMUS
  2. ATORVASTATIN [Concomitant]
     Active Substance: ATORVASTATIN
  3. OMNISCAN [Suspect]
     Active Substance: GADODIAMIDE
     Indication: RENAL IMPAIRMENT
     Dosage: .27 MILLIMOLE(S) PER KILOGRAM, SINGLE
     Route: 065
     Dates: start: 20000606, end: 20000606
  4. PREDNISOLONE. [Concomitant]
     Active Substance: PREDNISOLONE
  5. AZATHIOPRINE. [Concomitant]
     Active Substance: AZATHIOPRINE
  6. DOXAZOSIN [Concomitant]
     Active Substance: DOXAZOSIN\DOXAZOSIN MESYLATE
  7. PERINDOPRIL [Concomitant]
     Active Substance: PERINDOPRIL
  8. ALFACALCIDOL [Concomitant]
     Active Substance: ALFACALCIDOL
  9. CICLOSPORIN [Concomitant]
     Active Substance: CYCLOSPORINE
  10. BUMETANIDE. [Concomitant]
     Active Substance: BUMETANIDE
  11. WARFARIN [Concomitant]
     Active Substance: WARFARIN

REACTIONS (1)
  - Nephrogenic systemic fibrosis [Not Recovered/Not Resolved]

NARRATIVE: CASE EVENT DATE: 20000611
